FAERS Safety Report 8675518 (Version 2)
Quarter: 2013Q4

REPORT INFORMATION
  Report Type: Spontaneous
  Country: US (occurrence: US)
  Receive Date: 20120720
  Receipt Date: 20131101
  Transmission Date: 20140711
  Serious: No
  Sender: FDA-Public Use
  Company Number: US-009507513-1207USA002517

PATIENT
  Age: 61 Year
  Sex: Male
  Weight: 90.7 kg

DRUGS (11)
  1. PEPCID [Suspect]
     Indication: HIATUS HERNIA
     Dosage: 40 MG, UNK
     Route: 048
     Dates: start: 20120621, end: 20120623
  2. OMEGA-3 MARINE TRIGLYCERIDES [Concomitant]
     Dosage: 1000 MG, UNK
  3. XANTHOPHYLL [Concomitant]
     Dosage: 2 MG, UNK
  4. ALTACE [Concomitant]
     Dosage: 2.5 MG, UNK
  5. VITAMIN E [Concomitant]
     Dosage: 100 UNK, UNK
  6. VALIUM [Concomitant]
     Dosage: 2 MG, UNK
  7. VITAMINS (UNSPECIFIED) [Concomitant]
  8. ZOLOFT [Concomitant]
     Dosage: 100 MG, BID
  9. VISTARIL [Concomitant]
  10. XANAX [Concomitant]
  11. ANAFRANIL [Concomitant]
     Dosage: 25 MG, UNK

REACTIONS (7)
  - Abdominal pain [Recovering/Resolving]
  - Nausea [Recovering/Resolving]
  - Vomiting [Recovering/Resolving]
  - Diarrhoea [Recovering/Resolving]
  - Dizziness [Recovering/Resolving]
  - Cough [Recovering/Resolving]
  - Gastrooesophageal reflux disease [Recovering/Resolving]
